FAERS Safety Report 8800731 (Version 1)
Quarter: 2012Q4

REPORT INFORMATION
  Report Type: 
  Country: US (occurrence: US)
  Receive Date: 20120921
  Receipt Date: 20120921
  Transmission Date: 20130627
  Serious: No
  Sender: FDA-Public Use
  Company Number: US-TEVA-360113USA

PATIENT
  Sex: Female

DRUGS (2)
  1. PLAN B ONE-STEP [Suspect]
     Indication: POST COITAL CONTRACEPTION
     Dosage: 1.5 Milligram Daily;
     Route: 048
     Dates: start: 20120913, end: 20120913
  2. PLAN B ONE-STEP [Suspect]
     Dosage: 1.5 Milligram Daily;
     Route: 048
     Dates: start: 20120914, end: 20120914

REACTIONS (6)
  - Breast engorgement [Not Recovered/Not Resolved]
  - Abdominal distension [Unknown]
  - Thirst [Unknown]
  - Menstruation irregular [Not Recovered/Not Resolved]
  - Pelvic pain [Unknown]
  - Fatigue [Unknown]
